FAERS Safety Report 24442071 (Version 1)
Quarter: 2024Q4

REPORT INFORMATION
  Report Type: Spontaneous
  Country: JP (occurrence: JP)
  Receive Date: 20241016
  Receipt Date: 20241016
  Transmission Date: 20250115
  Serious: Yes (Death, Hospitalization)
  Sender: SANDOZ
  Company Number: JP-asahikaseip-2024-AER-05632

PATIENT
  Age: 6 Decade
  Sex: Female

DRUGS (1)
  1. RECLAST [Suspect]
     Active Substance: ZOLEDRONIC ACID
     Indication: Hypercalcaemia
     Dosage: 5 MG (1 YEAR)
     Route: 041

REACTIONS (3)
  - Multiple organ dysfunction syndrome [Fatal]
  - Off label use [Fatal]
  - Tumour lysis syndrome [Unknown]
